FAERS Safety Report 6119467-6 (Version None)
Quarter: 2009Q1

REPORT INFORMATION
  Report Type: 
  Country: None (occurrence: None)
  Receive Date: 20090316
  Receipt Date: 20090306
  Transmission Date: 20090719
  Serious: Yes (Hospitalization)
  Sender: FDA-Public Use
  Company Number: A0773145A

PATIENT
  Age: 69 Year
  Sex: Male
  Weight: 115.9 kg

DRUGS (10)
  1. AVANDIA [Suspect]
     Indication: DIABETES MELLITUS
     Dosage: 8MG PER DAY
     Route: 048
     Dates: start: 20050823, end: 20070701
  2. ALTACE [Concomitant]
  3. LEVOTHYROXINE [Concomitant]
  4. COZAAR [Concomitant]
  5. FOLIC ACID [Concomitant]
  6. POTASSIUM CHLORIDE [Concomitant]
  7. LOTREL [Concomitant]
  8. FLOMAX [Concomitant]
  9. NORVASC [Concomitant]
  10. COMBIVENT [Concomitant]

REACTIONS (2)
  - CARDIAC FAILURE CONGESTIVE [None]
  - MYOCARDIAL INFARCTION [None]
